FAERS Safety Report 9660419 (Version 1)
Quarter: 2013Q4

REPORT INFORMATION
  Report Type: Spontaneous
  Country: NL (occurrence: NL)
  Receive Date: 20131031
  Receipt Date: 20131031
  Transmission Date: 20140711
  Serious: Yes (Hospitalization)
  Sender: FDA-Public Use
  Company Number: NL-B.I. PHARMACEUTICALS,INC./RIDGEFIELD-2013-BI-34307NL

PATIENT
  Age: 70 Year
  Sex: Male

DRUGS (5)
  1. PRADAXA [Suspect]
     Dosage: 300 MG
  2. CRESTOR [Concomitant]
  3. ACE-INHIBITOR [Concomitant]
  4. BETA BLOCKER [Concomitant]
  5. DIURETICS [Concomitant]

REACTIONS (1)
  - Angina unstable [Unknown]
